FAERS Safety Report 16780834 (Version 1)
Quarter: 2019Q3

REPORT INFORMATION
  Report Type: Spontaneous
  Country: AU (occurrence: AU)
  Receive Date: 20190906
  Receipt Date: 20190906
  Transmission Date: 20191005
  Serious: Yes (Other)
  Sender: FDA-Public Use
  Company Number: AU-PFIZER INC-2019383987

PATIENT
  Age: 67 Year
  Sex: Male

DRUGS (5)
  1. PARACETAMOL [Suspect]
     Active Substance: ACETAMINOPHEN
     Indication: OSTEOARTHRITIS
     Dosage: UNK
  2. RAMIPRIL. [Suspect]
     Active Substance: RAMIPRIL
     Dosage: UNK
  3. BISOPROLOL FUMARATE. [Suspect]
     Active Substance: BISOPROLOL FUMARATE
     Dosage: UNK
  4. CLOPIDOGREL SULFATE [Suspect]
     Active Substance: CLOPIDOGREL BISULFATE
     Dosage: UNK
  5. SIMVASTATIN. [Suspect]
     Active Substance: SIMVASTATIN
     Dosage: UNK
     Route: 048

REACTIONS (10)
  - Pyelonephritis [Unknown]
  - Ureterolithiasis [Unknown]
  - Haemoglobin decreased [Unknown]
  - Kidney infection [Unknown]
  - Ureteric obstruction [Unknown]
  - Blood glucose fluctuation [Unknown]
  - Escherichia test positive [Unknown]
  - Bacterial test positive [Unknown]
  - Sepsis [Unknown]
  - Haemodynamic instability [Unknown]
